FAERS Safety Report 7740954-9 (Version None)
Quarter: 2011Q3

REPORT INFORMATION
  Report Type: 
  Country: None (occurrence: None)
  Receive Date: 20110909
  Receipt Date: 20110905
  Transmission Date: 20111222
  Serious: Yes (Death)
  Sender: FDA-Public Use
  Company Number: PHHY2011IT79401

PATIENT
  Age: 39 Year
  Sex: Male

DRUGS (2)
  1. CYCLOSPORINE [Suspect]
     Indication: LUNG TRANSPLANT
     Dosage: 550 MG, DAILY
  2. STEROID [Concomitant]
     Dosage: 5 MG, DAILY

REACTIONS (9)
  - ASTHENIA [None]
  - HAEMOPTYSIS [None]
  - B-CELL LYMPHOMA [None]
  - LEUKOPENIA [None]
  - EPSTEIN-BARR VIRUS ASSOCIATED LYMPHOPROLIFERATIVE DISORDER [None]
  - EPSTEIN-BARR VIRAEMIA [None]
  - LYMPHOPENIA [None]
  - LUNG NEOPLASM [None]
  - PYREXIA [None]
